FAERS Safety Report 24533646 (Version 1)
Quarter: 2024Q4

REPORT INFORMATION
  Report Type: Spontaneous
  Country: FR (occurrence: FR)
  Receive Date: 20241022
  Receipt Date: 20241022
  Transmission Date: 20250114
  Serious: Yes (Death)
  Sender: FRESENIUS KABI
  Company Number: None

PATIENT
  Age: 52 Year
  Sex: Female
  Weight: 50.3 kg

DRUGS (14)
  1. POSACONAZOLE [Suspect]
     Active Substance: POSACONAZOLE
     Indication: Oral candidiasis
     Route: 048
     Dates: start: 20240718
  2. ONDANSETRON [Suspect]
     Active Substance: ONDANSETRON
     Indication: Vomiting
     Route: 042
     Dates: start: 2024
  3. TRAMADOL HYDROCHLORIDE [Interacting]
     Active Substance: TRAMADOL HYDROCHLORIDE
     Indication: Product used for unknown indication
     Route: 048
     Dates: start: 2023
  4. LANSOPRAZOLE [Interacting]
     Active Substance: LANSOPRAZOLE
     Indication: Gastroduodenal ulcer
     Route: 048
     Dates: start: 2023
  5. DIAZEPAM [Interacting]
     Active Substance: DIAZEPAM
     Indication: Product used for unknown indication
     Route: 048
     Dates: start: 201902
  6. SERTRALINE HYDROCHLORIDE [Interacting]
     Active Substance: SERTRALINE HYDROCHLORIDE
     Indication: Bipolar disorder
     Route: 048
     Dates: start: 2018
  7. AMISULPRIDE [Interacting]
     Active Substance: AMISULPRIDE
     Indication: Bipolar disorder
     Route: 048
     Dates: start: 2018
  8. EBASTINE [Interacting]
     Active Substance: EBASTINE
     Indication: Product used for unknown indication
     Route: 048
     Dates: start: 2018
  9. BIMATOPROST\TIMOLOL [Interacting]
     Active Substance: BIMATOPROST\TIMOLOL
     Indication: Glaucoma
     Dosage: ROA: OCULAR USE
     Dates: start: 2023
  10. LEVOTHYROX 25 micrograms, scored tablets [LEVOTHYROXINE SODIUM] [Concomitant]
     Indication: Product used for unknown indication
     Route: 048
     Dates: start: 20240611
  11. PAROEX 0.12 PER CENT, solution for mouthwash [CHLORHEXIDINE DIGLUCONAT [Concomitant]
     Indication: Product used for unknown indication
     Route: 002
     Dates: start: 2024
  12. ZOPICLONE [ZOPICLONE] [Concomitant]
     Indication: Product used for unknown indication
     Route: 048
     Dates: start: 2024
  13. LACTULOSE [Concomitant]
     Active Substance: LACTULOSE
     Indication: Product used for unknown indication
     Route: 048
     Dates: start: 2024
  14. LAMOTRIGINE [LAMOTRIGINE] [Concomitant]
     Indication: Bipolar disorder
     Route: 048
     Dates: start: 2018

REACTIONS (1)
  - Cardiac arrest [Fatal]

NARRATIVE: CASE EVENT DATE: 20240725
